FAERS Safety Report 10144894 (Version 1)
Quarter: 2014Q2

REPORT INFORMATION
  Report Type: Spontaneous
  Country: US (occurrence: US)
  Receive Date: 20140430
  Receipt Date: 20140430
  Transmission Date: 20141212
  Serious: Yes (Other)
  Sender: FDA-Public Use
  Company Number: US-SANOFI-AVENTIS-2013SA086697

PATIENT
  Age: 43 Year
  Sex: Female
  Weight: 70 kg

DRUGS (9)
  1. DEMEROL [Suspect]
     Route: 065
  2. RELPAX [Suspect]
     Indication: MIGRAINE
     Route: 065
     Dates: start: 201212
  3. LEVOTHYROXINE [Concomitant]
     Indication: THYROID DISORDER
  4. DIAZEPAM [Concomitant]
     Indication: ANXIETY
  5. DOXYCYCLINE [Concomitant]
  6. PROMETHAZINE [Concomitant]
     Indication: NAUSEA
  7. PERCOCET [Concomitant]
     Indication: PAIN
  8. TEMAZEPAM [Concomitant]
     Indication: INSOMNIA
  9. FENTANYL [Concomitant]
     Indication: PAIN

REACTIONS (3)
  - Convulsion [Unknown]
  - Drug hypersensitivity [Unknown]
  - Migraine [Unknown]
